FAERS Safety Report 13504269 (Version 1)
Quarter: 2017Q2

REPORT INFORMATION
  Report Type: Spontaneous
  Country: US (occurrence: US)
  Receive Date: 20170502
  Receipt Date: 20170502
  Transmission Date: 20170830
  Serious: No
  Sender: FDA-Public Use
  Company Number: US-PFIZER INC-2017185534

PATIENT
  Age: 14 Year
  Sex: Female
  Weight: 43.7 kg

DRUGS (5)
  1. MIRALAX [Concomitant]
     Active Substance: POLYETHYLENE GLYCOL 3350
     Dosage: UNK (17GRAM/DOSE POWDER)
  2. GENOTROPIN [Suspect]
     Active Substance: SOMATROPIN
     Indication: GROWTH HORMONE DEFICIENCY
     Dosage: 2.0 MG, DAILY
     Route: 058
     Dates: start: 201111, end: 2014
  3. GENOTROPIN [Suspect]
     Active Substance: SOMATROPIN
     Indication: GROWTH FAILURE
     Dosage: 2 MG, (6 TIMES WEEKLY)
     Route: 058
     Dates: start: 201411, end: 201604
  4. GENOTROPIN [Suspect]
     Active Substance: SOMATROPIN
     Indication: BODY HEIGHT BELOW NORMAL
     Dosage: 1.4 MG, UNK (6NIGHT/WEEK)
     Route: 058
  5. GENOTROPIN [Suspect]
     Active Substance: SOMATROPIN
     Indication: ABNORMAL WEIGHT GAIN

REACTIONS (3)
  - Drug effect incomplete [Unknown]
  - Drug dose omission [Unknown]
  - Migraine [Not Recovered/Not Resolved]

NARRATIVE: CASE EVENT DATE: 201512
